FAERS Safety Report 12962860 (Version 3)
Quarter: 2017Q1

REPORT INFORMATION
  Report Type: Report from Study
  Country: PL (occurrence: PL)
  Receive Date: 20161121
  Receipt Date: 20170124
  Transmission Date: 20170428
  Serious: Yes (Life-Threatening, Hospitalization, Other)
  Sender: FDA-Public Use
  Company Number: PL-B.I. PHARMACEUTICALS,INC./RIDGEFIELD-2015-BI-08915BI

PATIENT
  Age: 66 Year
  Sex: Female
  Weight: 90 kg

DRUGS (18)
  1. POLHUMIN MIX3 [Concomitant]
     Route: 058
  2. POLHUMIN N [Concomitant]
     Route: 058
  3. HYDROCHLOROTHIAZIDUM [Concomitant]
     Indication: CHRONIC KIDNEY DISEASE
     Route: 048
     Dates: start: 201410
  4. XARELTO [Concomitant]
     Active Substance: RIVAROXABAN
     Indication: THROMBOSIS
     Route: 048
     Dates: start: 201410
  5. NEBILENIN [Concomitant]
     Indication: HYPERTENSION
     Route: 048
     Dates: start: 20140228
  6. DIUVER [Concomitant]
     Active Substance: TORSEMIDE
     Indication: HYPERTENSION
     Route: 048
     Dates: start: 201410
  7. ACARD [Concomitant]
     Active Substance: ASPIRIN
     Indication: CARDIAC FAILURE CHRONIC
     Route: 048
     Dates: start: 2010
  8. CARDURA XL [Concomitant]
     Active Substance: DOXAZOSIN MESYLATE
     Indication: HYPERTENSION
     Route: 048
     Dates: start: 201410
  9. LANTUS [Concomitant]
     Active Substance: INSULIN GLARGINE
     Indication: TYPE 2 DIABETES MELLITUS
     Route: 058
     Dates: start: 20160608
  10. POLHUMIN N [Concomitant]
     Indication: DIABETES MELLITUS
     Route: 058
     Dates: start: 201404
  11. ZAHRON [Concomitant]
     Active Substance: ROSUVASTATIN CALCIUM
     Indication: TYPE V HYPERLIPIDAEMIA
     Route: 048
     Dates: start: 201410
  12. XARELTO [Concomitant]
     Active Substance: RIVAROXABAN
     Indication: CARDIAC FAILURE CHRONIC
     Route: 048
  13. CLATRA [Concomitant]
     Indication: HYPERTENSION
     Route: 048
     Dates: start: 20160816
  14. ALFADIOL [Concomitant]
     Active Substance: ALFACALCIDOL
     Indication: PROPHYLAXIS
     Route: 048
     Dates: start: 20150310
  15. SUMILAR [Concomitant]
     Indication: HYPERTENSION
     Route: 048
     Dates: start: 201605
  16. POLHUMIN MIX3 [Concomitant]
     Indication: TYPE 2 DIABETES MELLITUS
     Route: 058
     Dates: start: 201404
  17. AVAMINA [Concomitant]
     Indication: DIABETES MELLITUS
     Route: 048
     Dates: start: 201410, end: 20150310
  18. PLACEBO [Suspect]
     Active Substance: UNSPECIFIED INGREDIENT
     Indication: TYPE 2 DIABETES MELLITUS
     Route: 048
     Dates: start: 20140609

REACTIONS (3)
  - Glomerular filtration rate decreased [Unknown]
  - Renal impairment [Not Recovered/Not Resolved]
  - Acute kidney injury [Unknown]

NARRATIVE: CASE EVENT DATE: 20150210
